FAERS Safety Report 26088866 (Version 1)
Quarter: 2025Q4

REPORT INFORMATION
  Report Type: Spontaneous
  Country: US (occurrence: US)
  Receive Date: 20251125
  Receipt Date: 20251125
  Transmission Date: 20260117
  Serious: No
  Sender: MISSION PHARMACAL COMPANY
  Company Number: US-Mission Pharmacal Company-2189310

PATIENT
  Age: 34 Year
  Sex: Female

DRUGS (9)
  1. THIOLA EC [Suspect]
     Active Substance: TIOPRONIN
     Indication: Cystinuria
     Dates: start: 20140823
  2. PROMETHAZINE [Concomitant]
     Active Substance: PROMETHAZINE HYDROCHLORIDE
  3. ATOMOXETINE [Concomitant]
     Active Substance: ATOMOXETINE
  4. AIMOVIG [Concomitant]
     Active Substance: ERENUMAB-AOOE
  5. SUMATRIPTAN [Concomitant]
     Active Substance: SUMATRIPTAN
  6. DAYVIGO [Concomitant]
     Active Substance: LEMBOREXANT
  7. ALPRAZOLAM [Concomitant]
     Active Substance: ALPRAZOLAM
  8. QUETIAPINE [Concomitant]
     Active Substance: QUETIAPINE
  9. VITAMIN D [Concomitant]
     Active Substance: VITAMIN D NOS

REACTIONS (2)
  - Drug ineffective [Unknown]
  - Renal failure [Unknown]
